FAERS Safety Report 25700356 (Version 1)
Quarter: 2025Q3

REPORT INFORMATION
  Report Type: Report from Study
  Country: US (occurrence: US)
  Receive Date: 20250819
  Receipt Date: 20250819
  Transmission Date: 20251021
  Serious: Yes (Other)
  Sender: ALEXION PHARMACEUTICALS
  Company Number: US-AstraZeneca-CH-00930549A

PATIENT
  Sex: Female

DRUGS (1)
  1. OSIMERTINIB [Suspect]
     Active Substance: OSIMERTINIB
     Indication: Lung neoplasm malignant
     Dosage: 80 MILLIGRAM, QD

REACTIONS (8)
  - Neuropathy peripheral [Unknown]
  - Pain in extremity [Unknown]
  - Skin exfoliation [Unknown]
  - Nail cuticle fissure [Unknown]
  - Back disorder [Unknown]
  - Blood sodium decreased [Unknown]
  - Nausea [Unknown]
  - Blood potassium increased [Unknown]
